FAERS Safety Report 24322574 (Version 1)
Quarter: 2024Q3

REPORT INFORMATION
  Report Type: Spontaneous
  Country: ES (occurrence: ES)
  Receive Date: 20240916
  Receipt Date: 20240916
  Transmission Date: 20241017
  Serious: Yes (Other)
  Sender: AUROBINDO
  Company Number: ES-ESTEVE-2017-01416

PATIENT
  Age: 6 Year
  Sex: Female

DRUGS (5)
  1. MYCOPHENOLIC ACID [Suspect]
     Active Substance: MYCOPHENOLIC ACID
     Indication: Immunosuppressant drug therapy
     Dosage: UNK
     Route: 065
  2. PREDNISONE [Suspect]
     Active Substance: PREDNISONE
     Indication: Immunosuppressant drug therapy
     Dosage: UNK
     Route: 065
  3. PREDNISONE [Suspect]
     Active Substance: PREDNISONE
     Dosage: ()
     Route: 065
  4. CYCLOSPORINE [Suspect]
     Active Substance: CYCLOSPORINE
     Indication: Immunosuppressant drug therapy
     Dosage: UNKNOWN
     Route: 065
  5. CYCLOSPORINE [Suspect]
     Active Substance: CYCLOSPORINE
     Dosage: ()
     Route: 065

REACTIONS (10)
  - Areflexia [Unknown]
  - Asthenia [Recovering/Resolving]
  - Cytomegalovirus test positive [Unknown]
  - Coxsackie virus test positive [Unknown]
  - Gingival hypertrophy [Unknown]
  - Neutrophilia [Unknown]
  - Pain in extremity [Unknown]
  - Short stature [Unknown]
  - Toxicity to various agents [Unknown]
  - Acute polyneuropathy [Recovering/Resolving]
